FAERS Safety Report 7573499-X (Version None)
Quarter: 2011Q2

REPORT INFORMATION
  Report Type: 
  Country: None (occurrence: None)
  Receive Date: 20110621
  Receipt Date: 20110602
  Transmission Date: 20111010
  Serious: Yes (Other)
  Sender: FDA-Public Use
  Company Number: 20110435

PATIENT
  Age: 71 Year
  Sex: Female

DRUGS (1)
  1. FUROSEMIDE [Suspect]
     Indication: OEDEMA PERIPHERAL

REACTIONS (4)
  - PURPURA [None]
  - BLISTER [None]
  - PEMPHIGOID [None]
  - RASH PRURITIC [None]
